FAERS Safety Report 12249356 (Version 1)
Quarter: 2016Q2

REPORT INFORMATION
  Report Type: Report from Study
  Country: US (occurrence: US)
  Receive Date: 20160408
  Receipt Date: 20160408
  Transmission Date: 20160815
  Serious: No
  Sender: FDA-Public Use
  Company Number: ADR-2015-01377

PATIENT
  Age: 50 Year
  Sex: Female

DRUGS (4)
  1. COMPOUNDED MORPHINE [Suspect]
     Active Substance: MORPHINE
     Dosage: 0.4003 MG/DAY
     Route: 037
  2. HYDROMORPHONE [Concomitant]
     Active Substance: HYDROMORPHONE
  3. COMPOUNDED BACLOFEN [Suspect]
     Active Substance: BACLOFEN
     Dosage: 60.05 MCG/DAY
     Route: 037
  4. BUPIVACAINE. [Suspect]
     Active Substance: BUPIVACAINE
     Dosage: 12.010 MG/DAY
     Route: 037

REACTIONS (3)
  - Burning sensation [Recovered/Resolved]
  - Adverse drug reaction [Recovered/Resolved]
  - Vulvovaginal burning sensation [Recovered/Resolved]
